FAERS Safety Report 5102014-5 (Version None)
Quarter: 2006Q3

REPORT INFORMATION
  Report Type: 
  Country: None (occurrence: None)
  Receive Date: 20060907
  Receipt Date: 20060828
  Transmission Date: 20061208
  Serious: Yes (Life-Threatening, Other)
  Sender: FDA-Public Use
  Company Number: 2006104073

PATIENT
  Age: 48 Year
  Sex: Male

DRUGS (4)
  1. NORVASC [Suspect]
     Indication: DRUG USE FOR UNKNOWN INDICATION
  2. ENALAPRIL MALEATE [Concomitant]
  3. COREG [Concomitant]
  4. IMDUR [Concomitant]

REACTIONS (3)
  - HYPOTENSION [None]
  - MULTIPLE DRUG OVERDOSE INTENTIONAL [None]
  - SUICIDAL BEHAVIOUR [None]
